FAERS Safety Report 23781845 (Version 2)
Quarter: 2024Q2

REPORT INFORMATION
  Report Type: Spontaneous
  Country: CA (occurrence: CA)
  Receive Date: 20240425
  Receipt Date: 20240626
  Transmission Date: 20240716
  Serious: Yes (Other)
  Sender: FDA-Public Use
  Company Number: CA-BAXTER-2024BAX017147

PATIENT
  Age: 19 Year
  Sex: Female

DRUGS (69)
  1. ACETAMINOPHEN [Suspect]
     Active Substance: ACETAMINOPHEN
     Indication: Complex regional pain syndrome
     Dosage: AT AN UNSPECIFIED DOSE AND FREQUENCY (DOSAGE FORM: NOT SPECIFIED)
     Route: 065
  2. AMITRIPTYLINE [Suspect]
     Active Substance: AMITRIPTYLINE
     Indication: Complex regional pain syndrome
     Dosage: 50 MILLIGRAM AT AN UNSPECIFIED FREQUENCY
     Route: 065
  3. AMITRIPTYLINE [Suspect]
     Active Substance: AMITRIPTYLINE
     Dosage: 150 MILLIGRAM AT AN UNSPECIFIED FREQUENCY
     Route: 065
  4. DICLOFENAC SODIUM [Suspect]
     Active Substance: DICLOFENAC\DICLOFENAC SODIUM
     Indication: Product used for unknown indication
     Dosage: AT AN UNSPECIFIED DOSE AND FREQUENCY (DOSAGE FORM: TABLET (ENTERIC COATED) )
     Route: 065
  5. TRAMADOL HYDROCHLORIDE [Suspect]
     Active Substance: TRAMADOL HYDROCHLORIDE
     Indication: Complex regional pain syndrome
     Dosage: AT AN UNSPECIFIED DOSE AND FREQUENCY
     Route: 065
  6. ASPIRIN [Suspect]
     Active Substance: ASPIRIN
     Indication: Complex regional pain syndrome
     Dosage: AT AN UNSPECIFIED DOSE AND FREQUENCY (DOSAGE FORM: NOT SPECIFIED)
     Route: 065
  7. BUPROPION [Suspect]
     Active Substance: BUPROPION
     Indication: Complex regional pain syndrome
     Dosage: AT AN UNSPECIFIED DOSE AND FREQUENCY
     Route: 065
  8. CAPSAICIN [Suspect]
     Active Substance: CAPSAICIN
     Indication: Complex regional pain syndrome
     Dosage: AT AN UNSPECIFIED DOSE AND FREQUENCY
     Route: 065
  9. CAPSICUM ANNUUM [Suspect]
     Active Substance: CAPSICUM
     Indication: Complex regional pain syndrome
     Dosage: AT AN UNSPECIFIED DOSE AND FREQUENCY
     Route: 048
  10. CARBAMAZEPINE [Suspect]
     Active Substance: CARBAMAZEPINE
     Indication: Complex regional pain syndrome
     Dosage: AT AN UNSPECIFIED DOSE AND FREQUENCY (DOSAGE FORM: NOT SPECIFIED)
     Route: 065
  11. CELECOXIB [Suspect]
     Active Substance: CELECOXIB
     Indication: Complex regional pain syndrome
     Dosage: AT AN UNSPECIFIED DOSE AND FREQUENCY
     Route: 065
  12. CITALOPRAM [Suspect]
     Active Substance: CITALOPRAM\CITALOPRAM HYDROBROMIDE
     Indication: Complex regional pain syndrome
     Dosage: AT AN UNSPECIFIED DOSE AND FREQUENCY
     Route: 065
  13. HERBALS [Suspect]
     Active Substance: HERBALS
     Indication: Complex regional pain syndrome
     Dosage: AT AN UNSPECIFIED DOSE AND FREQUENCY (DOSAGE FORM: GLOBULES ORAL)
     Route: 048
  14. CLONIDINE [Suspect]
     Active Substance: CLONIDINE
     Indication: Complex regional pain syndrome
     Dosage: AT AN UNSPECIFIED DOSE AND FREQUENCY
     Route: 065
  15. CODEINE [Suspect]
     Active Substance: CODEINE
     Indication: Complex regional pain syndrome
     Dosage: AT AN UNSPECIFIED DOSE AND FREQUENCY (DOSAGE FORM: NOT SPECIFIED)
     Route: 065
  16. DESIPRAMINE [Suspect]
     Active Substance: DESIPRAMINE
     Indication: Complex regional pain syndrome
     Dosage: AT AN UNSPECIFIED DOSE AND FREQUENCY
     Route: 065
  17. DEXTROMETHORPHAN HYDROBROMIDE [Suspect]
     Active Substance: DEXTROMETHORPHAN HYDROBROMIDE
     Indication: Complex regional pain syndrome
     Dosage: AT AN UNSPECIFIED DOSE AND FREQUENCY
     Route: 065
  18. DICLOFENAC [Suspect]
     Active Substance: DICLOFENAC
     Indication: Complex regional pain syndrome
     Dosage: AT AN UNSPECIFIED DOSE AND FREQUENCY (DOSAGE FORM: NOT SPECIFIED)
     Route: 065
  19. DULOXETINE HYDROCHLORIDE [Suspect]
     Active Substance: DULOXETINE HYDROCHLORIDE
     Indication: Complex regional pain syndrome
     Dosage: AT AN UNSPECIFIED DOSE AND FREQUENCY (CAPSULE, DELAYED RELEASE)
     Route: 065
  20. EUCALYPTUS OIL [Suspect]
     Active Substance: EUCALYPTUS OIL
     Indication: Complex regional pain syndrome
     Dosage: AT AN UNSPECIFIED DOSE AND FREQUENCY (DOSAGE FORM: DROPS INHALATION)
     Route: 065
  21. FENTANYL [Suspect]
     Active Substance: FENTANYL\FENTANYL CITRATE
     Indication: Complex regional pain syndrome
     Dosage: AT AN UNSPECIFIED DOSE AND FREQUENCY (DOSAGE FORM: NOT SPECIFIED)
     Route: 062
  22. GABAPENTIN [Suspect]
     Active Substance: GABAPENTIN
     Indication: Complex regional pain syndrome
     Dosage: AT AN UNSPECIFIED DOSE AND FREQUENCY (DOSAGE FORM: NOT SPECIFIED)
     Route: 065
  23. HYDROMORPHONE HYDROCHLORIDE [Suspect]
     Active Substance: HYDROMORPHONE HYDROCHLORIDE
     Indication: Complex regional pain syndrome
     Dosage: AT AN UNSPECIFIED DOSE AND FREQUENCY
     Route: 065
  24. IBUPROFEN [Suspect]
     Active Substance: IBUPROFEN
     Indication: Complex regional pain syndrome
     Dosage: AT AN UNSPECIFIED DOSE AND FREQUENCY (DOSAGE FORM: NOT SPECIFIED)
     Route: 065
  25. KETAMINE [Suspect]
     Active Substance: KETAMINE
     Indication: Complex regional pain syndrome
     Dosage: 25 MILLIGRAM, 1 EVERY 12 HOURS (DOSAGE FORM: NOT SPECIFIED)
     Route: 048
  26. KETAMINE [Suspect]
     Active Substance: KETAMINE
     Dosage: 50 MILLIGRAM AT AN UNSPECIFIED FREQUENCY (DOSAGE FORM: NOT SPECIFIED)
     Route: 048
  27. KETAMINE [Suspect]
     Active Substance: KETAMINE
     Dosage: 25 MILLIGRAM, 2 EVERY 1 DAY (DOSAGE FORM: NOT SPECIFIED)
     Route: 048
  28. KETAMINE [Suspect]
     Active Substance: KETAMINE
     Dosage: AT AN UNSPECIFIED DOSE AND FREQUENCY (DOSAGE FORM: NOT SPECIFIED)
     Route: 042
  29. KETOROLAC [Suspect]
     Active Substance: KETOROLAC TROMETHAMINE
     Indication: Complex regional pain syndrome
     Dosage: AT AN UNSPECIFIED DOSE AND FREQUENCY
     Route: 065
  30. LAVENDER OIL [Suspect]
     Active Substance: LAVENDER OIL
     Indication: Complex regional pain syndrome
     Dosage: AT AN UNSPECIFIED DOSE AND FREQUENCY (DOSAGE FORM: NOT SPECIFIED)
     Route: 065
  31. LIDOCAINE [Suspect]
     Active Substance: LIDOCAINE
     Indication: Complex regional pain syndrome
     Dosage: AT AN UNSPECIFIED DOSE AND FREQUENCY (DOSAGE FORM: OINTMENT TOPICAL)
     Route: 061
  32. LIDOCAINE\PRILOCAINE [Suspect]
     Active Substance: LIDOCAINE\PRILOCAINE
     Indication: Complex regional pain syndrome
     Dosage: AT AN UNSPECIFIED DOSE AND FREQUENCY
     Route: 065
  33. MEMANTINE [Suspect]
     Active Substance: MEMANTINE
     Indication: Complex regional pain syndrome
     Dosage: AT AN UNSPECIFIED DOSE AND FREQUENCY
     Route: 065
  34. METHADONE [Suspect]
     Active Substance: METHADONE HYDROCHLORIDE
     Indication: Complex regional pain syndrome
     Dosage: AT AN UNSPECIFIED DOSE AND FREQUENCY (DOSAGE FORM: NOT SPECIFIED)
     Route: 065
  35. METHADONE HYDROCHLORIDE [Suspect]
     Active Substance: METHADONE HYDROCHLORIDE
     Indication: Complex regional pain syndrome
     Dosage: AT AN UNSPECIFIED DOSE AND FREQUENCY
     Route: 065
  36. MEXILETINE [Suspect]
     Active Substance: MEXILETINE
     Indication: Complex regional pain syndrome
     Dosage: AT AN UNSPECIFIED DOSE AND FREQUENCY
     Route: 065
  37. MORPHINE [Suspect]
     Active Substance: MORPHINE
     Indication: Complex regional pain syndrome
     Dosage: AT AN UNSPECIFIED DOSE AND FREQUENCY (DOSAGE FORM: NOT SPECIFIED)
     Route: 065
  38. NAPROXEN [Suspect]
     Active Substance: NAPROXEN
     Indication: Complex regional pain syndrome
     Dosage: AT AN UNSPECIFIED DOSE AND FREQUENCY (DOSAGE FORM: NOT SPECIFIED)
     Route: 065
  39. NORTRIPTYLINE [Suspect]
     Active Substance: NORTRIPTYLINE
     Indication: Complex regional pain syndrome
     Dosage: AT AN UNSPECIFIED DOSE AND FREQUENCY
     Route: 065
  40. NORTRIPTYLINE HYDROCHLORIDE [Suspect]
     Active Substance: NORTRIPTYLINE HYDROCHLORIDE
     Indication: Complex regional pain syndrome
     Dosage: AT AN UNSPECIFIED DOSE AND FREQUENCY
     Route: 065
  41. OXCARBAZEPINE [Suspect]
     Active Substance: OXCARBAZEPINE
     Indication: Complex regional pain syndrome
     Dosage: AT AN UNSPECIFIED DOSE AND FREQUENCY (DOSAGE FORM: NOT SPECIFIED)
     Route: 065
  42. OXYCODONE [Suspect]
     Active Substance: OXYCODONE\OXYCODONE HYDROCHLORIDE
     Indication: Complex regional pain syndrome
     Dosage: 30 MILLIGRAM, AT AN UNSPECIFIED FREQUENCY (DOSAGE FORM: NOT SPECIFIED)
     Route: 065
  43. OXYCODONE [Suspect]
     Active Substance: OXYCODONE\OXYCODONE HYDROCHLORIDE
     Dosage: 240 MILLIGRAM, AT AN UNSPECIFIED FREQUENCY (DOSAGE FORM: NOT SPECIFIED)
     Route: 065
  44. OXYCODONE [Suspect]
     Active Substance: OXYCODONE\OXYCODONE HYDROCHLORIDE
     Dosage: 10 MILLIGRAM AT AN UNSPECIFIED FREQUENCY (DOSAGE FORM: NOT SPECIFIED)
     Route: 065
  45. OXYCODONE [Suspect]
     Active Substance: OXYCODONE\OXYCODONE HYDROCHLORIDE
     Dosage: 80 MILLIGRAM, 1 EVERY 8 HOURS (DOSAGE FORM: NOT SPECIFIED)
     Route: 065
  46. OXYCODONE [Suspect]
     Active Substance: OXYCODONE\OXYCODONE HYDROCHLORIDE
     Dosage: 10 MILLIGRAM, 1 EVERY 8 HOURS (DOSAGE FORM: NOT SPECIFIED)
     Route: 065
  47. OXYCODONE [Suspect]
     Active Substance: OXYCODONE\OXYCODONE HYDROCHLORIDE
     Dosage: 50 MILLIGRAM AT AN UNSPECIFIED FREQUENCY (DOSAGE FORM: NOT SPECIFIED)
     Route: 065
  48. OXYCODONE [Suspect]
     Active Substance: OXYCODONE\OXYCODONE HYDROCHLORIDE
     Dosage: 120 MILLIGRAM, 1 EVERY 12 HOURS (DOSAGE FORM: NOT SPECIFIED)
     Route: 065
  49. OXYCODONE [Suspect]
     Active Substance: OXYCODONE\OXYCODONE HYDROCHLORIDE
     Dosage: AT UNSPECIFIED DOSE AND FREQUENCY
     Route: 065
  50. OXYCODONE [Suspect]
     Active Substance: OXYCODONE\OXYCODONE HYDROCHLORIDE
     Dosage: 80 MILLIGRAM AT UNSPECIFIED FREQUENCY
     Route: 065
  51. OXYCODONE [Suspect]
     Active Substance: OXYCODONE\OXYCODONE HYDROCHLORIDE
     Dosage: 60 MILLIGRAM 2 EVERY 1 DAYS
     Route: 065
  52. OXYCODONE [Suspect]
     Active Substance: OXYCODONE\OXYCODONE HYDROCHLORIDE
     Dosage: 120 MILLIGRAM AT UNSPECIFIED FREQUENCY
     Route: 065
  53. PREGABALIN [Suspect]
     Active Substance: PREGABALIN
     Indication: Complex regional pain syndrome
     Dosage: 300 MILLIGRAM AT AN UNSPECIFIED FREQUENCY
     Route: 065
  54. PREGABALIN [Suspect]
     Active Substance: PREGABALIN
     Dosage: 150 MILLIGRAM AT AN UNSPECIFIED FREQUENCYUNK
     Route: 065
  55. PREGABALIN [Suspect]
     Active Substance: PREGABALIN
     Dosage: 300 MILLIGRAM, 1 EVERY 1 DAYS
     Route: 065
  56. PREGABALIN [Suspect]
     Active Substance: PREGABALIN
     Dosage: 100 MILLIGRAM, 1 EVERY 1 DAYS
     Route: 065
  57. PREGABALIN [Suspect]
     Active Substance: PREGABALIN
     Dosage: 100 MILLIGRAM AT AN UNSPECIFIED FREQUENCY
     Route: 065
  58. PREGABALIN [Suspect]
     Active Substance: PREGABALIN
     Dosage: 50 MILLIGRAM 2 EVERY 1 DAYS
     Route: 065
  59. PREGABALIN [Suspect]
     Active Substance: PREGABALIN
     Dosage: 150 MILLIGRAM 2 EVERY 1 DAYS
     Route: 065
  60. TOPIRAMATE [Suspect]
     Active Substance: TOPIRAMATE
     Indication: Complex regional pain syndrome
     Dosage: AT AN UNSPECIFIED DOSE AND FREQUENCY (DOSAGE FORM: NOT SPECIFIED)
     Route: 065
  61. TRAMADOL HYDROCHLORIDE [Suspect]
     Active Substance: TRAMADOL HYDROCHLORIDE
     Indication: Complex regional pain syndrome
     Dosage: AT AN UNSPECIFIED DOSE AND FREQUENCY (DOSAGE FORM: NOT SPECIFIED)
     Route: 065
  62. VENLAFAXINE [Suspect]
     Active Substance: VENLAFAXINE HYDROCHLORIDE
     Indication: Complex regional pain syndrome
     Dosage: AT AN UNSPECIFIED DOSE AND FREQUENCY
     Route: 065
  63. LIDOCAINE [Suspect]
     Active Substance: LIDOCAINE
     Indication: Complex regional pain syndrome
     Dosage: AT UNSPEIFED DOSE AND FREQUENCY
     Route: 065
  64. LIDOCAINE [Suspect]
     Active Substance: LIDOCAINE
     Dosage: AT UNSPEIFED DOSE AND FREQUENCY
     Route: 062
  65. LIDOCAINE [Suspect]
     Active Substance: LIDOCAINE
     Dosage: AT UNSPEIFED DOSE AND FREQUENCY
     Route: 061
  66. LIDOCAINE HYDROCHLORIDE [Suspect]
     Active Substance: LIDOCAINE HYDROCHLORIDE
     Indication: Complex regional pain syndrome
     Dosage: AT UNSPEIFED DOSE AND FREQUENCY
     Route: 065
  67. HERBALS [Suspect]
     Active Substance: HERBALS
     Indication: Complex regional pain syndrome
     Dosage: AT UNSPECIFIED DOSE AND FREQUENCY
     Route: 065
  68. ROSEMARY OIL [Suspect]
     Active Substance: ROSEMARY OIL
     Indication: Product used for unknown indication
     Dosage: AT UNSPECIFIED DOSE AND FREQUENCY (DOSAGE FORM: NOT SPECIFIED)
     Route: 065
  69. ASPIRIN [Suspect]
     Active Substance: ASPIRIN
     Indication: Complex regional pain syndrome
     Dosage: DOSAGE FORM: NOT SPECIFIED, UNSPECIFIED DOSE AND FREQUENCY
     Route: 065

REACTIONS (3)
  - Therapy non-responder [Unknown]
  - Weight increased [Unknown]
  - Immune thrombocytopenia [Unknown]
